FAERS Safety Report 23774656 (Version 1)
Quarter: 2024Q2

REPORT INFORMATION
  Report Type: Spontaneous
  Country: US (occurrence: None)
  Receive Date: 20240422
  Receipt Date: 20240422
  Transmission Date: 20240716
  Serious: No
  Sender: FDA-Public Use
  Company Number: None

PATIENT
  Age: 34 Year
  Sex: Female

DRUGS (2)
  1. IRON SUCROSE [Suspect]
     Active Substance: IRON SUCROSE
     Indication: Anaemia of pregnancy
     Dosage: FREQUENCY : EVERY OTHER WEEK;?
     Route: 042
  2. IRON SUCROSE [Suspect]
     Active Substance: IRON SUCROSE
     Indication: Iron deficiency anaemia

REACTIONS (5)
  - Exposure during pregnancy [None]
  - Maternal drugs affecting foetus [None]
  - Uterine contractions during pregnancy [None]
  - Dehydration [None]
  - Infusion related reaction [None]

NARRATIVE: CASE EVENT DATE: 20240422
